FAERS Safety Report 4897005-3 (Version None)
Quarter: 2005Q4

REPORT INFORMATION
  Report Type: 
  Country: None (occurrence: None)
  Receive Date: 20051228
  Receipt Date: 20050308
  Transmission Date: 20060501
  Serious: Yes (Hospitalization)
  Sender: FDA-Public Use
  Company Number: USA050392614

PATIENT
  Age: 41 Year
  Sex: Female

DRUGS (2)
  1. HUMULIN 70/30 [Suspect]
     Dates: end: 20050301
  2. ENALAPRIL MALEATE [Concomitant]

REACTIONS (1)
  - BLOOD GLUCOSE INCREASED [None]
